FAERS Safety Report 5236000-1 (Version None)
Quarter: 2007Q1

REPORT INFORMATION
  Report Type: 
  Country: None (occurrence: None)
  Receive Date: 20061208
  Receipt Date: 20060607
  Transmission Date: 20070707
  Serious: Yes (Other)
  Sender: FDA-Public Use
  Company Number: 2006UW05808

PATIENT
  Age: 67 Year
  Weight: 100.69 kg

DRUGS (8)
  1. CRESTOR [Suspect]
     Indication: HYPERCHOLESTEROLAEMIA
     Dosage: 10 MG PO
     Route: 048
     Dates: start: 20030801, end: 20060301
  2. ACTOS [Concomitant]
  3. HUMALOG [Concomitant]
  4. LANTUS [Concomitant]
  5. ASPIRIN [Concomitant]
  6. ALTACE [Concomitant]
  7. COREG [Concomitant]
  8. PLAVIX [Concomitant]

REACTIONS (4)
  - BONE DISORDER [None]
  - BURNING SENSATION [None]
  - COORDINATION ABNORMAL [None]
  - MYALGIA [None]
